FAERS Safety Report 9467687 (Version 2)
Quarter: 2013Q3

REPORT INFORMATION
  Report Type: Spontaneous
  Country: US (occurrence: US)
  Receive Date: 20130821
  Receipt Date: 20130917
  Transmission Date: 20140515
  Serious: Yes (Other)
  Sender: FDA-Public Use
  Company Number: US-BAYER-2013-100473

PATIENT
  Age: 66 Year
  Sex: Female

DRUGS (1)
  1. MIRENA [Suspect]
     Indication: UTERINE CERVICAL EXFOLIATION
     Dosage: 20 MCG/24HR, CONT
     Route: 015
     Dates: start: 20130710

REACTIONS (3)
  - Genital haemorrhage [None]
  - Off label use [None]
  - Endometrial cancer [None]
